FAERS Safety Report 9068356 (Version 1)
Quarter: 2013Q1

REPORT INFORMATION
  Report Type: Report from Study
  Country: BE (occurrence: BE)
  Receive Date: 20130128
  Receipt Date: 20130128
  Transmission Date: 20140127
  Serious: Yes (Other)
  Sender: FDA-Public Use
  Company Number: BE-ROCHE-1183082

PATIENT
  Age: 47 Year
  Sex: Female
  Weight: 52 kg

DRUGS (11)
  1. HERCEPTIN [Suspect]
     Indication: BREAST CANCER METASTATIC
     Route: 065
     Dates: start: 200912, end: 201012
  2. HERCEPTIN [Suspect]
     Route: 065
     Dates: start: 201101, end: 201104
  3. XELODA [Suspect]
     Indication: BREAST CANCER METASTATIC
     Route: 065
     Dates: start: 201104, end: 201210
  4. XELODA [Suspect]
     Route: 065
     Dates: start: 201112, end: 201212
  5. TAXOTERE [Suspect]
     Indication: BREAST CANCER METASTATIC
     Route: 065
     Dates: start: 200912, end: 201012
  6. TAXOL [Suspect]
     Indication: BREAST CANCER METASTATIC
     Route: 065
     Dates: start: 201101, end: 201104
  7. LAPATINIB [Suspect]
     Indication: BREAST CANCER METASTATIC
     Route: 065
     Dates: start: 201104, end: 201210
  8. LAPATINIB [Suspect]
     Route: 065
     Dates: start: 201112, end: 201212
  9. NOVALDEX [Suspect]
     Indication: BREAST CANCER METASTATIC
     Route: 065
     Dates: start: 201003, end: 201012
  10. NOVALDEX [Suspect]
     Route: 065
     Dates: start: 201110, end: 201112
  11. PERTUZUMAB [Suspect]
     Indication: BREAST CANCER METASTATIC
     Dosage: 840 TO 420. 420 MG SINGLE USE VIAL.
     Route: 042

REACTIONS (5)
  - Metastases to central nervous system [Unknown]
  - Metastases to breast [Unknown]
  - Metastases to bone [Unknown]
  - Toxicity to various agents [Unknown]
  - Disease progression [Not Recovered/Not Resolved]
